FAERS Safety Report 23312420 (Version 8)
Quarter: 2024Q3

REPORT INFORMATION
  Report Type: Spontaneous
  Country: CA (occurrence: CA)
  Receive Date: 20231219
  Receipt Date: 20240906
  Transmission Date: 20241017
  Serious: Yes (Other)
  Sender: CELLTRION
  Company Number: CA-CELLTRION INC.-2023CA024136

PATIENT

DRUGS (6)
  1. INFLECTRA [Suspect]
     Active Substance: INFLIXIMAB-DYYB
     Indication: Crohn^s disease
     Dosage: 300 MG, EVERY 4 WEEKS
     Route: 042
     Dates: start: 20200406
  2. INFLECTRA [Suspect]
     Active Substance: INFLIXIMAB-DYYB
     Dosage: 300 MG, EVERY 4 WEEKS
     Route: 042
     Dates: start: 20240411
  3. INFLECTRA [Suspect]
     Active Substance: INFLIXIMAB-DYYB
     Dosage: 300MG, AFTER 3 WEEKS AND 5 DAYS (PRESCRIBED EVERY 4 WEEKS)
     Route: 042
     Dates: start: 20240507
  4. INFLECTRA [Suspect]
     Active Substance: INFLIXIMAB-DYYB
     Dosage: 300 MG, EVERY 4 WEEKS
     Route: 042
     Dates: start: 20240604
  5. INFLECTRA [Suspect]
     Active Substance: INFLIXIMAB-DYYB
     Dosage: 300 MG, EVERY 4 WEEKS
     Route: 042
     Dates: start: 20240703
  6. INFLECTRA [Suspect]
     Active Substance: INFLIXIMAB-DYYB
     Dosage: 300 MG, 3 WEEKS 5 DAYS (EVERY 4 WEEKS)
     Route: 042
     Dates: start: 20240729

REACTIONS (8)
  - Lipoma [Not Recovered/Not Resolved]
  - Condition aggravated [Recovering/Resolving]
  - Blood pressure increased [Unknown]
  - Off label use [Unknown]
  - Off label use [Unknown]
  - Intentional product use issue [Unknown]
  - Arthralgia [Recovered/Resolved]
  - Fatigue [Unknown]

NARRATIVE: CASE EVENT DATE: 20240507
